FAERS Safety Report 7251842-9 (Version None)
Quarter: 2011Q1

REPORT INFORMATION
  Report Type: 
  Country: None (occurrence: None)
  Receive Date: 20110128
  Receipt Date: 20100107
  Transmission Date: 20110831
  Serious: No
  Sender: FDA-Public Use
  Company Number: US-ABBOTT-10P-163-0618190-00

PATIENT
  Sex: Female
  Weight: 59.474 kg

DRUGS (1)
  1. HUMIRA [Suspect]
     Indication: CROHN'S DISEASE
     Dates: start: 20091203

REACTIONS (7)
  - NAUSEA [None]
  - ABDOMINAL PAIN [None]
  - DIZZINESS [None]
  - FATIGUE [None]
  - DIARRHOEA [None]
  - FLATULENCE [None]
  - WEIGHT DECREASED [None]
